FAERS Safety Report 25339102 (Version 1)
Quarter: 2025Q2

REPORT INFORMATION
  Report Type: Spontaneous
  Country: US (occurrence: US)
  Receive Date: 20250521
  Receipt Date: 20250521
  Transmission Date: 20250716
  Serious: No
  Sender: AMNEAL
  Company Number: US-AMNEAL PHARMACEUTICALS-2025-AMRX-01671

PATIENT
  Sex: Male
  Weight: 88.889 kg

DRUGS (1)
  1. CREXONT [Suspect]
     Active Substance: CARBIDOPA\LEVODOPA
     Indication: Parkinson^s disease
     Dosage: (70/280 MG) 2 CAPSULES, 3 /DAY
     Route: 048
     Dates: start: 20250312, end: 202504

REACTIONS (2)
  - Product use issue [Unknown]
  - Product dose omission issue [Unknown]
